FAERS Safety Report 17206246 (Version 1)
Quarter: 2020Q1

REPORT INFORMATION
  Report Type: Spontaneous
  Country: US (occurrence: US)
  Receive Date: 20191226
  Receipt Date: 20191226
  Transmission Date: 20200409
  Serious: Yes (Hospitalization)
  Sender: FDA-Public Use
  Company Number: None

PATIENT
  Age: 38 Year
  Sex: Male
  Weight: 139 kg

DRUGS (3)
  1. ENCORAFENIB [Suspect]
     Active Substance: ENCORAFENIB
     Indication: MALIGNANT MELANOMA
     Dosage: ?          OTHER FREQUENCY:450MG QHS;?
     Route: 048
  2. MELATONIN 1 MG PO QHS PRN INSOMNIA [Concomitant]
  3. BINIMETINIB [Suspect]
     Active Substance: BINIMETINIB

REACTIONS (3)
  - Intracranial tumour haemorrhage [None]
  - Metastases to central nervous system [None]
  - Cerebral haemorrhage [None]

NARRATIVE: CASE EVENT DATE: 20191223
